FAERS Safety Report 15546815 (Version 1)
Quarter: 2018Q4

REPORT INFORMATION
  Report Type: Spontaneous
  Country: US (occurrence: US)
  Receive Date: 20181018
  Receipt Date: 20181018
  Transmission Date: 20190205
  Serious: No
  Sender: FDA-Public Use
  Company Number: None

PATIENT
  Age: 44 Year
  Sex: Female

DRUGS (1)
  1. BENLYSTA [Suspect]
     Active Substance: BELIMUMAB
     Indication: SYSTEMIC LUPUS ERYTHEMATOSUS
     Route: 058
     Dates: start: 201809

REACTIONS (8)
  - Dry throat [None]
  - Dry mouth [None]
  - Back pain [None]
  - Rash [None]
  - Skin lesion [None]
  - Migraine [None]
  - Skin exfoliation [None]
  - Pruritus generalised [None]
